FAERS Safety Report 7919376-3 (Version None)
Quarter: 2011Q4

REPORT INFORMATION
  Report Type: 
  Country: None (occurrence: None)
  Receive Date: 20111115
  Receipt Date: 20111115
  Transmission Date: 20120403
  Serious: Yes (Hospitalization)
  Sender: FDA-Public Use
  Company Number: None

PATIENT
  Sex: Female
  Weight: 76.4 kg

DRUGS (3)
  1. CISPLATIN [Suspect]
     Dosage: 50 MG
     Dates: end: 20111018
  2. LORCET-HD [Concomitant]
  3. TAXOL [Suspect]
     Dosage: 135 MG
     Dates: end: 20111018

REACTIONS (17)
  - CONSTIPATION [None]
  - ELECTROLYTE IMBALANCE [None]
  - HAEMATOCHEZIA [None]
  - DEHYDRATION [None]
  - HAEMATOCRIT DECREASED [None]
  - MELAENA [None]
  - HAEMOGLOBIN DECREASED [None]
  - PYREXIA [None]
  - URINE OUTPUT DECREASED [None]
  - WHITE BLOOD CELL COUNT DECREASED [None]
  - DIARRHOEA [None]
  - WEIGHT DECREASED [None]
  - ABDOMINAL PAIN [None]
  - VOMITING [None]
  - NAUSEA [None]
  - BLOOD CULTURE POSITIVE [None]
  - BACTERIAL INFECTION [None]
